FAERS Safety Report 15473535 (Version 2)
Quarter: 2018Q4

REPORT INFORMATION
  Report Type: Spontaneous
  Country: US (occurrence: US)
  Receive Date: 20181008
  Receipt Date: 20181105
  Transmission Date: 20190205
  Serious: Yes (Hospitalization)
  Sender: FDA-Public Use
  Company Number: US-UNITED THERAPEUTICS-UNT-2018-015043

PATIENT
  Sex: Female

DRUGS (2)
  1. TYVASO [Suspect]
     Active Substance: TREPROSTINIL
     Dosage: 36 ?G, QID
  2. TYVASO [Suspect]
     Active Substance: TREPROSTINIL
     Indication: PULMONARY ARTERIAL HYPERTENSION
     Dosage: 18 ?G, QID
     Dates: start: 20180913

REACTIONS (9)
  - Chest pain [Unknown]
  - Headache [Recovered/Resolved]
  - Dizziness [Recovered/Resolved]
  - Drooling [Not Recovered/Not Resolved]
  - Productive cough [Recovered/Resolved]
  - Pneumonia [Recovered/Resolved]
  - Odynophagia [Unknown]
  - Oral candidiasis [Unknown]
  - Oral pain [Unknown]

NARRATIVE: CASE EVENT DATE: 201809
